FAERS Safety Report 8046190-3 (Version None)
Quarter: 2012Q1

REPORT INFORMATION
  Report Type: 
  Country: None (occurrence: None)
  Receive Date: 20120113
  Receipt Date: 20120113
  Transmission Date: 20120608
  Serious: Yes (Hospitalization)
  Sender: FDA-Public Use
  Company Number: None

PATIENT
  Sex: Female
  Weight: 90.1 kg

DRUGS (1)
  1. INTRON A [Suspect]
     Dosage: 14 MG
     Dates: end: 20120102

REACTIONS (4)
  - NAUSEA [None]
  - VOMITING [None]
  - DECREASED APPETITE [None]
  - DEHYDRATION [None]
